FAERS Safety Report 24380780 (Version 2)
Quarter: 2024Q4

REPORT INFORMATION
  Report Type: Spontaneous
  Country: JP (occurrence: JP)
  Receive Date: 20240930
  Receipt Date: 20241004
  Transmission Date: 20250115
  Serious: Yes (Hospitalization)
  Sender: EISAI
  Company Number: JP-Eisai-202406821_LEN-HCC_P_1

PATIENT
  Age: 86 Year

DRUGS (1)
  1. LENVIMA [Suspect]
     Active Substance: LENVATINIB
     Indication: Hepatocellular carcinoma
     Route: 048

REACTIONS (3)
  - Anaemia [Recovering/Resolving]
  - Malaise [Recovering/Resolving]
  - Hypoaesthesia [Unknown]
